FAERS Safety Report 10146222 (Version 1)
Quarter: 2014Q2

REPORT INFORMATION
  Report Type: Spontaneous
  Country: US (occurrence: US)
  Receive Date: 20140501
  Receipt Date: 20140501
  Transmission Date: 20141212
  Serious: Yes (Hospitalization)
  Sender: FDA-Public Use
  Company Number: US-SA-2014SA053838

PATIENT
  Age: 63 Year
  Sex: Female

DRUGS (2)
  1. LANTUS SOLOSTAR [Suspect]
     Indication: TYPE 2 DIABETES MELLITUS
     Dosage: 80 U AT HS?20 U AT AM
     Route: 065
     Dates: start: 2008
  2. SOLOSTAR [Concomitant]
     Indication: DEVICE THERAPY

REACTIONS (3)
  - Hypoacusis [Unknown]
  - Drug administration error [Unknown]
  - Hospitalisation [Unknown]
